FAERS Safety Report 7117025-8 (Version None)
Quarter: 2010Q4

REPORT INFORMATION
  Report Type: 
  Country: None (occurrence: None)
  Receive Date: 20101122
  Receipt Date: 20101116
  Transmission Date: 20110411
  Serious: Yes (Other)
  Sender: FDA-Public Use
  Company Number: US-PFIZER INC-2010149894

PATIENT
  Sex: Female

DRUGS (4)
  1. SERTRALINE HYDROCHLORIDE [Suspect]
     Indication: ANXIETY
     Dosage: 12.5 MG, DAILY
     Route: 048
     Dates: start: 20101112
  2. ATIVAN [Concomitant]
     Dosage: 25 MG, DAILY
  3. ESTRADIOL [Concomitant]
     Indication: HORMONE REPLACEMENT THERAPY
     Dosage: UNK
  4. CYCLOSPORINE [Concomitant]
     Dosage: UNK
     Route: 047

REACTIONS (4)
  - ANXIETY [None]
  - DYSPNOEA [None]
  - FEELING JITTERY [None]
  - RASH [None]
